FAERS Safety Report 9091445 (Version 1)
Quarter: 2013Q1

REPORT INFORMATION
  Report Type: Report from Study
  Country: US (occurrence: US)
  Receive Date: 20130131
  Receipt Date: 20130131
  Transmission Date: 20140127
  Serious: No
  Sender: FDA-Public Use
  Company Number: US-ABBOTT-12P-163-0999719-00

PATIENT
  Age: 43 Year
  Sex: Female
  Weight: 119.86 kg

DRUGS (10)
  1. HUMIRA [Suspect]
     Indication: RHEUMATOID ARTHRITIS
     Dates: start: 2010
  2. METHOTREXATE [Concomitant]
     Indication: RHEUMATOID ARTHRITIS
     Route: 048
  3. FOLIC ACID [Concomitant]
     Indication: RHEUMATOID ARTHRITIS
     Route: 048
  4. DAYPRO [Concomitant]
     Indication: RHEUMATOID ARTHRITIS
     Route: 048
  5. FLEXERIL [Concomitant]
     Indication: RHEUMATOID ARTHRITIS
     Route: 048
  6. DIOVAN HCT [Concomitant]
     Indication: HYPERTENSION
     Route: 048
  7. METFORMIN [Concomitant]
     Indication: GLUCOSE TOLERANCE IMPAIRED
     Route: 048
  8. VITAMIN D2 [Concomitant]
     Indication: VITAMIN D DECREASED
     Route: 048
  9. SIMVASTATIN [Concomitant]
     Indication: BLOOD CHOLESTEROL
     Route: 048
  10. CPAP MACHINE [Concomitant]
     Indication: SLEEP APNOEA SYNDROME

REACTIONS (9)
  - Nasal congestion [Unknown]
  - Rhinorrhoea [Unknown]
  - Abdominal pain [Unknown]
  - Nodule [Unknown]
  - Cellulitis [Not Recovered/Not Resolved]
  - Erythema [Not Recovered/Not Resolved]
  - Abdominal distension [Not Recovered/Not Resolved]
  - Nasopharyngitis [Unknown]
  - Feeling hot [Not Recovered/Not Resolved]
